FAERS Safety Report 20092175 (Version 1)
Quarter: 2021Q4

REPORT INFORMATION
  Report Type: Spontaneous
  Country: US (occurrence: None)
  Receive Date: 20211119
  Receipt Date: 20211119
  Transmission Date: 20220304
  Serious: No
  Sender: FDA-Public Use
  Company Number: None

PATIENT
  Age: 77 Year
  Sex: Male
  Weight: 76 kg

DRUGS (1)
  1. TOCILIZUMAB [Suspect]
     Active Substance: TOCILIZUMAB
     Indication: Upper respiratory tract infection
     Dosage: FREQUENCY : ONCE;?
     Route: 042
     Dates: start: 20210728, end: 20210728

REACTIONS (3)
  - Staphylococcal bacteraemia [None]
  - Escherichia bacteraemia [None]
  - Endocarditis [None]

NARRATIVE: CASE EVENT DATE: 20210731
